FAERS Safety Report 10727577 (Version 14)
Quarter: 2017Q1

REPORT INFORMATION
  Report Type: Spontaneous
  Country: US (occurrence: US)
  Receive Date: 20150121
  Receipt Date: 20170203
  Transmission Date: 20170428
  Serious: Yes (Hospitalization, Other)
  Sender: FDA-Public Use
  Company Number: US-009507513-1501USA005249

PATIENT
  Sex: Female
  Weight: 54.42 kg

DRUGS (5)
  1. FOSAMAX [Suspect]
     Active Substance: ALENDRONATE SODIUM
     Dosage: 70 MG, QW
     Route: 048
     Dates: start: 20070420
  2. ALENDRONATE SODIUM. [Suspect]
     Active Substance: ALENDRONATE SODIUM
     Dosage: 10 MG, UNK
     Route: 048
     Dates: start: 20090311
  3. FOSAMAX [Suspect]
     Active Substance: ALENDRONATE SODIUM
     Dosage: 10 MG, UNK
     Route: 048
     Dates: start: 200607, end: 20090105
  4. FOSAMAX [Suspect]
     Active Substance: ALENDRONATE SODIUM
     Indication: OSTEOPOROSIS
     Dosage: 10 MG, QD
     Route: 048
     Dates: start: 20011219
  5. BONIVA [Suspect]
     Active Substance: IBANDRONATE SODIUM
     Indication: OSTEOPOROSIS
     Dosage: 150 MG, QM
     Route: 048
     Dates: start: 200905, end: 2013

REACTIONS (21)
  - Osteoarthritis [Unknown]
  - Tonsillectomy [Unknown]
  - Hypomagnesaemia [Recovered/Resolved]
  - Uterine disorder [Unknown]
  - Abdominal pain [Unknown]
  - Femur fracture [Unknown]
  - Low turnover osteopathy [Unknown]
  - Drug hypersensitivity [Unknown]
  - Bundle branch block left [Unknown]
  - Rotator cuff syndrome [Unknown]
  - Hypercholesterolaemia [Unknown]
  - Delirium [Recovered/Resolved]
  - Drug hypersensitivity [Unknown]
  - Hypertension [Unknown]
  - Anxiety [Unknown]
  - Patellofemoral pain syndrome [Unknown]
  - Hypokalaemia [Recovered/Resolved]
  - Fibrocystic breast disease [Unknown]
  - Rheumatoid arthritis [Unknown]
  - Femur fracture [Recovering/Resolving]
  - Cataract operation [Unknown]

NARRATIVE: CASE EVENT DATE: 20130211
